FAERS Safety Report 9570874 (Version 1)
Quarter: 2013Q4

REPORT INFORMATION
  Report Type: Spontaneous
  Country: US (occurrence: US)
  Receive Date: 20131001
  Receipt Date: 20131001
  Transmission Date: 20140711
  Serious: Yes (Hospitalization)
  Sender: FDA-Public Use
  Company Number: US-ASTRAZENECA-2013SE71134

PATIENT
  Age: 66 Year
  Sex: Female

DRUGS (11)
  1. PRILOSEC [Suspect]
     Indication: GASTROOESOPHAGEAL REFLUX DISEASE
     Route: 048
  2. LORAZAPAM [Suspect]
     Indication: MOOD ALTERED
     Route: 048
  3. PREVACID 24 HR [Suspect]
     Indication: DYSPEPSIA
     Route: 048
  4. PREVACID 24 HR [Suspect]
     Indication: GASTROOESOPHAGEAL REFLUX DISEASE
     Route: 048
  5. PREVACID 24 HR [Suspect]
     Indication: DYSPEPSIA
     Dosage: OTC, 3 DF
     Route: 048
  6. PREVACID 24 HR [Suspect]
     Indication: GASTROOESOPHAGEAL REFLUX DISEASE
     Dosage: OTC, 3 DF
     Route: 048
  7. PREVACID 24 HR [Suspect]
     Indication: DYSPEPSIA
     Dosage: 1 DF ON SUNDAY AND MONDAY
     Route: 048
  8. PREVACID 24 HR [Suspect]
     Indication: GASTROOESOPHAGEAL REFLUX DISEASE
     Dosage: 1 DF ON SUNDAY AND MONDAY
     Route: 048
  9. PENICILLIN [Suspect]
     Indication: ANTIBIOTIC THERAPY
     Route: 048
  10. UNKNOWN [Suspect]
     Indication: PAIN
     Route: 065
  11. TALWIN [Suspect]
     Route: 065

REACTIONS (5)
  - Speech disorder [Recovered/Resolved]
  - Drug hypersensitivity [Recovered/Resolved]
  - Drug eruption [Recovered/Resolved]
  - Oesophageal pain [Unknown]
  - Feeling abnormal [Unknown]
